FAERS Safety Report 7461470-8 (Version None)
Quarter: 2011Q2

REPORT INFORMATION
  Report Type: 
  Country: None (occurrence: None)
  Receive Date: 20110506
  Receipt Date: 20110502
  Transmission Date: 20111010
  Serious: No
  Sender: FDA-Public Use
  Company Number: US-PFIZER INC-2011095609

PATIENT
  Sex: Female
  Weight: 73 kg

DRUGS (3)
  1. AMITRIPTYLINE [Concomitant]
     Indication: FIBROMYALGIA
     Dosage: 70 MG, 1X/DAY
  2. PROTONIX [Suspect]
     Indication: GASTROOESOPHAGEAL REFLUX DISEASE
     Dosage: 40 MG, 1X/DAY
     Route: 048
  3. ROBAXIN [Concomitant]
     Indication: MYALGIA
     Dosage: 750 MG, 1X/DAY

REACTIONS (2)
  - CONSTIPATION [None]
  - DIZZINESS [None]
